FAERS Safety Report 19144783 (Version 1)
Quarter: 2021Q2

REPORT INFORMATION
  Report Type: Spontaneous
  Country: US (occurrence: US)
  Receive Date: 20210416
  Receipt Date: 20210416
  Transmission Date: 20210717
  Serious: No
  Sender: FDA-Public Use
  Company Number: None

PATIENT
  Sex: Male

DRUGS (1)
  1. GAMMAGARD LIQUID [Suspect]
     Active Substance: HUMAN IMMUNOGLOBULIN G
     Indication: MYASTHENIA GRAVIS
     Dosage: ?          OTHER DOSE:40GM;?
     Route: 011
     Dates: start: 20210308

REACTIONS (6)
  - Decreased appetite [None]
  - Fatigue [None]
  - Abdominal pain [None]
  - Asthenia [None]
  - Product temperature excursion issue [None]
  - Product physical consistency issue [None]
